FAERS Safety Report 5764199-7 (Version None)
Quarter: 2008Q2

REPORT INFORMATION
  Report Type: 
  Country: None (occurrence: None)
  Receive Date: 20080605
  Receipt Date: 20080523
  Transmission Date: 20081010
  Serious: Yes (Hospitalization)
  Sender: FDA-Public Use
  Company Number: 2008BI009277

PATIENT
  Age: 43 Year
  Sex: Female
  Weight: 113.3993 kg

DRUGS (1)
  1. AVONEX [Suspect]
     Indication: MULTIPLE SCLEROSIS
     Dosage: 30 UG; QW; IM
     Route: 030
     Dates: start: 19980701

REACTIONS (11)
  - CAMPYLOBACTER INTESTINAL INFECTION [None]
  - COLITIS [None]
  - COLITIS ULCERATIVE [None]
  - DEHYDRATION [None]
  - DERMATITIS ALLERGIC [None]
  - FATIGUE [None]
  - HEADACHE [None]
  - INFLAMMATORY BOWEL DISEASE [None]
  - INSOMNIA [None]
  - PYREXIA [None]
  - URTICARIA [None]
